FAERS Safety Report 12060098 (Version 3)
Quarter: 2016Q2

REPORT INFORMATION
  Report Type: Other
  Country: CA (occurrence: CA)
  Receive Date: 20160210
  Receipt Date: 20160408
  Transmission Date: 20160815
  Serious: Yes (Life-Threatening, Hospitalization, Other)
  Sender: FDA-Public Use
  Company Number: CA-SHIRE-CA201601370

PATIENT
  Age: 53 Year
  Sex: Female

DRUGS (4)
  1. FIRAZYR [Suspect]
     Active Substance: ICATIBANT ACETATE
     Indication: HEREDITARY ANGIOEDEMA
     Dosage: 30 MG, AS REQ^D
     Route: 058
     Dates: start: 20150806
  2. BERINERT [Concomitant]
     Active Substance: HUMAN C1-ESTERASE INHIBITOR
     Indication: PRODUCT USED FOR UNKNOWN INDICATION
     Dosage: UNK, 1X/WEEK
     Route: 041
     Dates: start: 2013
  3. PREDNISONE. [Concomitant]
     Active Substance: PREDNISONE
     Indication: INFLAMMATION
  4. PREDNISONE. [Concomitant]
     Active Substance: PREDNISONE
     Indication: HEREDITARY ANGIOEDEMA
     Dosage: 17 MG, 1X/DAY:QD
     Route: 065
     Dates: start: 2014

REACTIONS (5)
  - Anaphylactic reaction [Recovered/Resolved with Sequelae]
  - Gastritis [Not Recovered/Not Resolved]
  - Hospitalisation [Recovered/Resolved]
  - Therapeutic response unexpected [Unknown]
  - Dyspnoea [Recovering/Resolving]

NARRATIVE: CASE EVENT DATE: 2016
